FAERS Safety Report 16975952 (Version 1)
Quarter: 2019Q4

REPORT INFORMATION
  Report Type: Report from Study
  Country: DE (occurrence: DE)
  Receive Date: 20191030
  Receipt Date: 20191030
  Transmission Date: 20200122
  Serious: Yes (Other)
  Sender: FDA-Public Use
  Company Number: DE-SHIRE-DE201833494

PATIENT

DRUGS (17)
  1. CALCITRAT [Concomitant]
     Indication: HYPOPARATHYROIDISM
     Dosage: UNK
     Route: 048
  2. CANDESARTAN. [Concomitant]
     Active Substance: CANDESARTAN
     Indication: HYPERTONIA
     Dosage: UNK
     Route: 065
  3. CALCIUM [Concomitant]
     Active Substance: CALCIUM
     Indication: PRODUCT USED FOR UNKNOWN INDICATION
     Dosage: UNK
     Route: 042
  4. IDEOS [Concomitant]
     Active Substance: CALCIUM CARBONATE\CHOLECALCIFEROL
     Indication: HYPOPARATHYROIDISM
     Dosage: UNK
     Route: 065
  5. SPIRONOLACTON [Concomitant]
     Active Substance: SPIRONOLACTONE
     Indication: OEDEMA
     Dosage: UNK
     Route: 065
  6. PANTOPRAZOL [Concomitant]
     Active Substance: PANTOPRAZOLE SODIUM
     Indication: GASTROINTESTINAL DISORDER
     Route: 065
  7. MAGNETRANS [Concomitant]
     Indication: MUSCLE SPASMS
     Dosage: UNK
     Route: 065
  8. ENTYVIO [Concomitant]
     Active Substance: VEDOLIZUMAB
     Indication: CROHN^S DISEASE
     Dosage: UNK
     Route: 065
  9. NATPARA (PARATHYROID HORMONE) [Suspect]
     Active Substance: PARATHYROID HORMONE
     Indication: HYPOPARATHYROIDISM
     Dosage: 25 ?G, 2X/DAY:BID
     Route: 058
     Dates: start: 20170918
  10. FUROSEMID [Concomitant]
     Active Substance: FUROSEMIDE
     Indication: OEDEMA
     Dosage: UNK
     Route: 065
  11. CORTISON [Concomitant]
     Active Substance: CORTISONE ACETATE
     Indication: PRODUCT USED FOR UNKNOWN INDICATION
     Dosage: UNK
     Route: 065
  12. L-THYROXIN [Concomitant]
     Active Substance: LEVOTHYROXINE SODIUM
     Indication: THYROIDECTOMY
     Dosage: 150-200 MICROGRAM ,1X/DAY:QD
     Route: 048
  13. NATPARA (PARATHYROID HORMONE) [Suspect]
     Active Substance: PARATHYROID HORMONE
     Dosage: 25 MICROGRAM, EVERY SECOND DAY IN THE MORNING/ DAILY IN THE EVENING
     Route: 058
     Dates: start: 201811
  14. KALIUM [Concomitant]
     Active Substance: POTASSIUM CHLORIDE
     Indication: HYPOKALAEMIA
     Dosage: UNK
     Route: 065
  15. XIPAMID [Concomitant]
     Active Substance: XIPAMIDE
     Indication: OEDEMA
  16. AMGEVITA [Concomitant]
     Active Substance: ADALIMUMAB
     Indication: CROHN^S DISEASE
  17. XIPAMID [Concomitant]
     Active Substance: XIPAMIDE
     Indication: HYPERTONIA
     Dosage: 20 UNK, UNK
     Route: 065

REACTIONS (7)
  - Off label use [Not Recovered/Not Resolved]
  - Medication error [Recovered/Resolved]
  - Urinary tract infection [Recovering/Resolving]
  - Skin reaction [Recovered/Resolved]
  - Tetany [Recovered/Resolved]
  - Blood magnesium decreased [Not Recovered/Not Resolved]
  - Incorrect dose administered [Recovered/Resolved]

NARRATIVE: CASE EVENT DATE: 201805
